FAERS Safety Report 15406146 (Version 2)
Quarter: 2018Q4

REPORT INFORMATION
  Report Type: Spontaneous
  Country: JP (occurrence: JP)
  Receive Date: 20180920
  Receipt Date: 20181003
  Transmission Date: 20190204
  Serious: Yes (Death, Other)
  Sender: FDA-Public Use
  Company Number: JP-TEVA-2018-JP-956537

PATIENT
  Age: 78 Year
  Sex: Male

DRUGS (10)
  1. TAKECAB [Concomitant]
     Active Substance: VONOPRAZAN FUMURATE
     Route: 065
  2. NOURIAST [Concomitant]
     Active Substance: ISTRADEFYLLINE
     Route: 065
  3. AZILECT [Suspect]
     Active Substance: RASAGILINE MESYLATE
     Indication: PARKINSON^S DISEASE
     Route: 048
     Dates: start: 20180614, end: 20180903
  4. GABAPEN [Concomitant]
     Active Substance: GABAPENTIN
     Route: 065
  5. STALEVO [Concomitant]
     Active Substance: CARBIDOPA\ENTACAPONE\LEVODOPA
     Route: 065
  6. AZILECT [Suspect]
     Active Substance: RASAGILINE MESYLATE
     Route: 048
     Dates: start: 20180904, end: 20180912
  7. NEODOPASTON [Concomitant]
     Active Substance: CARBIDOPA\LEVODOPA
     Route: 065
  8. MAGMITT [Concomitant]
     Active Substance: MAGNESIUM OXIDE
     Route: 065
  9. ARICEPT [Concomitant]
     Active Substance: DONEPEZIL HYDROCHLORIDE
     Route: 065
  10. PRAZAXA [Concomitant]
     Active Substance: DABIGATRAN ETEXILATE MESYLATE
     Route: 065

REACTIONS (1)
  - Cerebral haemorrhage [Fatal]

NARRATIVE: CASE EVENT DATE: 20180912
